FAERS Safety Report 7004042-1 (Version None)
Quarter: 2010Q3

REPORT INFORMATION
  Report Type: 
  Country: None (occurrence: None)
  Receive Date: 20100920
  Receipt Date: 20100121
  Transmission Date: 20110219
  Serious: No
  Sender: FDA-Public Use
  Company Number: US-WYE-H13121410

PATIENT
  Sex: Female
  Weight: 67.19 kg

DRUGS (3)
  1. PRISTIQ [Suspect]
     Indication: DEPRESSION
     Route: 048
     Dates: start: 20100119
  2. PRISTIQ [Suspect]
     Indication: ANXIETY
  3. MULTI-VITAMINS [Concomitant]

REACTIONS (1)
  - FATIGUE [None]
